FAERS Safety Report 20356814 (Version 2)
Quarter: 2022Q1

REPORT INFORMATION
  Report Type: Spontaneous
  Country: US (occurrence: US)
  Receive Date: 20220120
  Receipt Date: 20220204
  Transmission Date: 20220424
  Serious: Yes (Other)
  Sender: FDA-Public Use
  Company Number: US-TEVA-2022-US-1999122

PATIENT
  Age: 85 Year
  Sex: Male

DRUGS (2)
  1. PREDNISONE [Suspect]
     Active Substance: PREDNISONE
     Indication: Polymyalgia rheumatica
     Dosage: 15 MILLIGRAM DAILY;
     Route: 065
  2. PREDNISONE [Suspect]
     Active Substance: PREDNISONE
     Indication: Osteoarthritis
     Dosage: 5 MILLIGRAM DAILY;
     Route: 065

REACTIONS (3)
  - Whipple^s disease [Recovering/Resolving]
  - Disease recurrence [Recovering/Resolving]
  - Rheumatoid arthritis [Recovering/Resolving]
